FAERS Safety Report 13445359 (Version 1)
Quarter: 2017Q2

REPORT INFORMATION
  Report Type: Other
  Country: GB (occurrence: US)
  Receive Date: 20170414
  Receipt Date: 20170414
  Transmission Date: 20170830
  Serious: Yes (Life-Threatening, Hospitalization, Other)
  Sender: FDA-Public Use
  Company Number: US-INTERNATIONAL MEDICATION SYSTEMS, LIMITED-1065399

PATIENT
  Age: 35 Year
  Sex: Female
  Weight: 62 kg

DRUGS (11)
  1. AMLODIPINE [Concomitant]
     Active Substance: AMLODIPINE BESYLATE
  2. ISOPHANE INSULIN [Concomitant]
     Active Substance: INSULIN NOS
  3. METOLAZONE. [Concomitant]
     Active Substance: METOLAZONE
  4. CARVEDILOL. [Concomitant]
     Active Substance: CARVEDILOL
  5. OXYCODONE 5 MG, PARACETAMOL 325 MG [Concomitant]
  6. MORPHINE SULFATE. [Concomitant]
     Active Substance: MORPHINE SULFATE
     Route: 030
  7. LIDOCAINE 2% [Suspect]
     Active Substance: LIDOCAINE
     Indication: LOCAL ANAESTHESIA
  8. TORASEMIDE [Concomitant]
     Active Substance: TORSEMIDE
  9. ATORVASTATIN [Concomitant]
     Active Substance: ATORVASTATIN
  10. GLYCERYL TRINITRATE [Concomitant]
     Active Substance: NITROGLYCERIN
  11. ACETYLSALICYLIC ACID [Concomitant]
     Active Substance: ASPIRIN

REACTIONS (4)
  - Overdose [Recovered/Resolved]
  - Toxicity to various agents [Recovered/Resolved]
  - Cardiac arrest [Recovered/Resolved]
  - Iatrogenic injury [None]
